FAERS Safety Report 4938641-5 (Version None)
Quarter: 2006Q1

REPORT INFORMATION
  Report Type: 
  Country: None (occurrence: None)
  Receive Date: 20060306
  Receipt Date: 20060224
  Transmission Date: 20060701
  Serious: Yes (Other)
  Sender: FDA-Public Use
  Company Number: FACT0600108

PATIENT
  Age: 55 Year
  Sex: Male
  Weight: 97.1 kg

DRUGS (2)
  1. FACTIVE [Suspect]
     Indication: RESPIRATORY TRACT INFECTION BACTERIAL
     Dosage: 320 MG, QD, ORAL
     Route: 048
     Dates: start: 20060223, end: 20060223
  2. LODRANE (BROMPHENIRAMINE MALEATE, PSEUDOEPHEDRINE HYDROCHLORIDE) [Suspect]
     Indication: BRONCHITIS ACUTE
     Dosage: UNK
     Route: 065
     Dates: start: 20060223

REACTIONS (1)
  - DRUG HYPERSENSITIVITY [None]
